FAERS Safety Report 6429597-7 (Version None)
Quarter: 2009Q4

REPORT INFORMATION
  Report Type: 
  Country: None (occurrence: None)
  Receive Date: 20091103
  Receipt Date: 20091023
  Transmission Date: 20100525
  Serious: Yes (Disabling)
  Sender: FDA-Public Use
  Company Number: 1-20438375

PATIENT
  Sex: Female

DRUGS (1)
  1. COLCHICINE (MANUFACTURER UNKNOWN) [Suspect]
     Indication: OFF LABEL USE
     Dosage: ONCE WEEKLY, INTRAVENOUS
     Route: 042
     Dates: start: 20050901, end: 20060401

REACTIONS (4)
  - ACTIVITIES OF DAILY LIVING IMPAIRED [None]
  - ADVERSE EVENT [None]
  - MUSCLE DISORDER [None]
  - OFF LABEL USE [None]
